FAERS Safety Report 13718763 (Version 3)
Quarter: 2017Q4

REPORT INFORMATION
  Report Type: Spontaneous
  Country: FI (occurrence: FI)
  Receive Date: 20170705
  Receipt Date: 20171123
  Transmission Date: 20180320
  Serious: Yes (Other)
  Sender: FDA-Public Use
  Company Number: FI-ABBVIE-17K-055-2028415-00

PATIENT
  Age: 14 Year
  Sex: Male
  Weight: 73 kg

DRUGS (3)
  1. HUMIRA [Suspect]
     Active Substance: ADALIMUMAB
     Indication: CROHN^S DISEASE
     Route: 058
     Dates: start: 20170327, end: 201706
  2. PENTASA [Concomitant]
     Active Substance: MESALAMINE
     Indication: CROHN^S DISEASE
     Route: 048
     Dates: end: 201706
  3. CORTIMENT (BUDESONIDE) [Concomitant]
     Active Substance: BUDESONIDE
     Indication: CROHN^S DISEASE
     Dates: end: 201707

REACTIONS (9)
  - Tubulointerstitial nephritis [Recovering/Resolving]
  - Drug level changed [Unknown]
  - Red blood cell sedimentation rate abnormal [Recovered/Resolved]
  - Renal failure [Recovering/Resolving]
  - Haemoglobin decreased [Recovering/Resolving]
  - Blood creatinine increased [Recovering/Resolving]
  - Blood pressure increased [Unknown]
  - Drug specific antibody [Unknown]
  - Renal tubular injury [Recovering/Resolving]

NARRATIVE: CASE EVENT DATE: 2017
